FAERS Safety Report 9335210 (Version 3)
Quarter: 2013Q3

REPORT INFORMATION
  Report Type: Report from Study
  Country: JP (occurrence: JP)
  Receive Date: 20130606
  Receipt Date: 20130807
  Transmission Date: 20140515
  Serious: Yes (Death, Hospitalization)
  Sender: FDA-Public Use
  Company Number: JP-B.I. PHARMACEUTICALS,INC./RIDGEFIELD-2013-BI-15711NB

PATIENT
  Age: 87 Year
  Sex: Female
  Weight: 49 kg

DRUGS (2)
  1. MICAMLO COMBINATION [Suspect]
     Indication: HYPERTENSION
     Dosage: 1DF, TELMISARTAN 40MG+AMLODIPINE 5MG
     Route: 048
     Dates: start: 20120321, end: 20130428
  2. MICARDIS [Concomitant]
     Indication: HYPERTENSION
     Dosage: 40 MG
     Route: 065

REACTIONS (2)
  - Cerebral haemorrhage [Fatal]
  - Pneumonia [Recovered/Resolved]
